FAERS Safety Report 6710151-4 (Version None)
Quarter: 2010Q2

REPORT INFORMATION
  Report Type: 
  Country: None (occurrence: None)
  Receive Date: 20100430
  Receipt Date: 20100415
  Transmission Date: 20101027
  Serious: Yes (Death, Other)
  Sender: FDA-Public Use
  Company Number: 2010001433

PATIENT
  Age: 79 Year
  Sex: Male

DRUGS (1)
  1. TARCEVA [Suspect]
     Indication: LUNG NEOPLASM MALIGNANT
     Dosage: 150 MG, QD, ORAL
     Route: 048
     Dates: start: 20100223

REACTIONS (4)
  - LUNG CARCINOMA CELL TYPE UNSPECIFIED STAGE IV [None]
  - MALIGNANT NEOPLASM PROGRESSION [None]
  - OEDEMA PERIPHERAL [None]
  - PULMONARY EMBOLISM [None]
